FAERS Safety Report 22005761 (Version 2)
Quarter: 2023Q1

REPORT INFORMATION
  Report Type: Spontaneous
  Country: FR (occurrence: None)
  Receive Date: 20230217
  Receipt Date: 20230307
  Transmission Date: 20230417
  Serious: Yes (Other)
  Sender: FDA-Public Use
  Company Number: 2023A039355

PATIENT
  Sex: Female

DRUGS (1)
  1. ESOMEPRAZOLE [Suspect]
     Active Substance: ESOMEPRAZOLE
     Indication: Gastritis
     Route: 048

REACTIONS (7)
  - Renal failure [Unknown]
  - Arthralgia [Unknown]
  - Spinal pain [Unknown]
  - Off label use [Unknown]
  - Product use issue [Unknown]
  - Asthenia [Unknown]
  - Osteoporosis [Unknown]
